FAERS Safety Report 9569657 (Version 2)
Quarter: 2013Q3

REPORT INFORMATION
  Report Type: Spontaneous
  Country: US (occurrence: US)
  Receive Date: 20130930
  Receipt Date: 20130930
  Transmission Date: 20140515
  Serious: No
  Sender: FDA-Public Use
  Company Number: US-AMGEN-USASP2013064209

PATIENT
  Age: 67 Year
  Sex: Male

DRUGS (3)
  1. ENBREL [Suspect]
     Indication: ANKYLOSING SPONDYLITIS
     Dosage: 50 MG, QWK
     Route: 058
     Dates: start: 20130509
  2. HYDROCORTISONE [Suspect]
     Indication: INJECTION SITE ERYTHEMA
     Dosage: UNK
     Route: 065
     Dates: start: 2013
  3. HYDROCORTISONE [Suspect]
     Indication: INJECTION SITE PRURITUS

REACTIONS (3)
  - Drug ineffective [Unknown]
  - Injection site erythema [Unknown]
  - Injection site pruritus [Unknown]
